FAERS Safety Report 14874880 (Version 7)
Quarter: 2025Q1

REPORT INFORMATION
  Report Type: Spontaneous
  Country: US (occurrence: US)
  Receive Date: 20180510
  Receipt Date: 20250225
  Transmission Date: 20250409
  Serious: Yes (Other)
  Sender: PFIZER
  Company Number: US-PFIZER INC-2018191068

PATIENT
  Age: 55 Year
  Sex: Female
  Weight: 76 kg

DRUGS (31)
  1. BOSULIF [Suspect]
     Active Substance: BOSUTINIB MONOHYDRATE
     Indication: Chronic myeloid leukaemia
     Dosage: TAKE 1 TABLET DAILY
     Route: 048
     Dates: start: 201804
  2. ZOLPIDEM TARTRATE [Concomitant]
     Active Substance: ZOLPIDEM TARTRATE
  3. LEVEMIR [Concomitant]
     Active Substance: INSULIN DETEMIR
  4. HUMALOG [Concomitant]
     Active Substance: INSULIN LISPRO
  5. METFORMIN [Concomitant]
     Active Substance: METFORMIN HYDROCHLORIDE
     Dosage: 1000 MILLIGRAMS, TWICE DAILY
  6. ATORVASTATIN CALCIUM [Concomitant]
     Active Substance: ATORVASTATIN CALCIUM
  7. BISOPROLOL FUMARATE [Concomitant]
     Active Substance: BISOPROLOL FUMARATE
  8. ONDANSETRON [Concomitant]
     Active Substance: ONDANSETRON
     Indication: Nausea
  9. LORAZEPAM [Concomitant]
     Active Substance: LORAZEPAM
  10. GABAPENTIN [Concomitant]
     Active Substance: GABAPENTIN
     Indication: Paraesthesia
     Dosage: 600 MILLIGRAMS, 3 TIMES DAILY
  11. MORPHINE SULFATE [Concomitant]
     Active Substance: MORPHINE SULFATE
  12. LEVETIRACETAM [Concomitant]
     Active Substance: LEVETIRACETAM
     Dosage: 750 MILLIGRAMS, TWICE DAILY
  13. VITAMIN D2 [Concomitant]
     Active Substance: ERGOCALCIFEROL
  14. DOXAZOSIN MESYLATE [Concomitant]
     Active Substance: DOXAZOSIN MESYLATE
  15. AMLODIPINE BESYLATE [Concomitant]
     Active Substance: AMLODIPINE BESYLATE
  16. LISINOPRIL [Concomitant]
     Active Substance: LISINOPRIL
     Dosage: 10 MILLIGRAMS, DAILY
  17. BACLOFEN [Concomitant]
     Active Substance: BACLOFEN
     Indication: Muscle spasms
     Dosage: 5 MILLIGRAMS, 3 TIMES DAILY
  18. FENOFIBRATE [Concomitant]
     Active Substance: FENOFIBRATE
     Indication: Lipids increased
     Dosage: 145 MILLIGRAMS, DAILY
  19. AMLODIPINE [Concomitant]
     Active Substance: AMLODIPINE BESYLATE
     Indication: Hypertension
  20. ASPIRIN [Concomitant]
     Active Substance: ASPIRIN
     Indication: Cardiac disorder
  21. ATORVASTATIN [Concomitant]
     Active Substance: ATORVASTATIN
     Indication: Cardiac valve disease
     Dosage: 80 MILLIGRAMS, DAILY
  22. CARBAMAZEPINE [Concomitant]
     Active Substance: CARBAMAZEPINE
     Indication: Seizure
     Dosage: 200 MILLIGRAMS, TWICE DAILY
  23. CETIRIZINE [Concomitant]
     Active Substance: CETIRIZINE HYDROCHLORIDE
     Indication: Seasonal allergy
  24. DOXAZOSIN [Concomitant]
     Active Substance: DOXAZOSIN MESYLATE
     Indication: Hypertension
     Dosage: 8 MILLIGRAMS, TWICE DAILY
  25. MAGNESIUM OXIDE [Concomitant]
     Active Substance: MAGNESIUM OXIDE
     Dosage: 400 MILLIGRAMS, DAILY
  26. MORPHINE [Concomitant]
     Active Substance: MORPHINE
     Indication: Pain in extremity
     Dosage: 30 MILLIGRAMS, TWICE DAILY
  27. MORPHINE [Concomitant]
     Active Substance: MORPHINE
     Indication: Pain in extremity
  28. VITAMIN D COMPLEX [Concomitant]
     Dosage: 50,000 UNITS, ONE CAPSULE WEEKLY
     Route: 048
  29. ZOLPIDEM [Concomitant]
     Active Substance: ZOLPIDEM TARTRATE
     Dosage: 5 MILLIGRAMS, DAILY AT BEDTIME
  30. FERROUS SULFATE [Concomitant]
     Active Substance: FERROUS SULFATE
     Dosage: 27 MILLIGRAMS, DAILY
  31. LANTUS [Concomitant]
     Active Substance: INSULIN GLARGINE
     Dosage: 14 UNITS, DAILY

REACTIONS (6)
  - Cerebrovascular accident [Unknown]
  - Photophobia [Unknown]
  - Rash [Unknown]
  - Speech disorder [Unknown]
  - Gastrointestinal disorder [Unknown]
  - Carpal tunnel syndrome [Unknown]

NARRATIVE: CASE EVENT DATE: 20180101
